APPROVED DRUG PRODUCT: JUNEL 1/20
Active Ingredient: ETHINYL ESTRADIOL; NORETHINDRONE ACETATE
Strength: 0.02MG;1MG
Dosage Form/Route: TABLET;ORAL-21
Application: A076380 | Product #001 | TE Code: AB
Applicant: BARR LABORATORIES LLC (AN INDIRECT WHOLLY OWNED SUB OF TEVA PHARMACEUTICALS USA INC)
Approved: May 30, 2003 | RLD: No | RS: No | Type: RX